FAERS Safety Report 16913382 (Version 1)
Quarter: 2019Q4

REPORT INFORMATION
  Report Type: Spontaneous
  Country: US (occurrence: US)
  Receive Date: 20191014
  Receipt Date: 20191014
  Transmission Date: 20200122
  Serious: No
  Sender: FDA-Public Use
  Company Number: US-GLENMARK PHARMACEUTICALS-2019GMK042580

PATIENT

DRUGS (5)
  1. ATIVAN [Concomitant]
     Active Substance: LORAZEPAM
     Indication: PRODUCT USED FOR UNKNOWN INDICATION
     Dosage: USED FOR DECADES NOW (UNSPECIFIED)
     Route: 065
  2. BACLOFEN. [Concomitant]
     Active Substance: BACLOFEN
     Indication: PRODUCT USED FOR UNKNOWN INDICATION
     Dosage: USED FOR DECADES NOW (UNSPECIFIED)
     Route: 065
  3. TACROLIMUS. [Suspect]
     Active Substance: TACROLIMUS
     Indication: PRURITUS
     Dosage: UNK, BID
     Route: 061
     Dates: start: 20190607, end: 20190805
  4. VALIUM [Concomitant]
     Active Substance: DIAZEPAM
     Indication: PRODUCT USED FOR UNKNOWN INDICATION
     Dosage: USED FOR DECADES NOW (UNSPECIFIED)
     Route: 065
  5. TIZANIDINE. [Concomitant]
     Active Substance: TIZANIDINE
     Indication: PRODUCT USED FOR UNKNOWN INDICATION
     Dosage: USED FOR DECADES NOW (UNSPECIFIED)
     Route: 065

REACTIONS (5)
  - Dysphonia [Recovering/Resolving]
  - Periorbital swelling [Recovering/Resolving]
  - Drug ineffective [Unknown]
  - Swelling face [Recovering/Resolving]
  - Hallucination, visual [Recovering/Resolving]
